FAERS Safety Report 7400396-2 (Version None)
Quarter: 2011Q2

REPORT INFORMATION
  Report Type: 
  Country: None (occurrence: None)
  Receive Date: 20110407
  Receipt Date: 20110329
  Transmission Date: 20111010
  Serious: Yes (Hospitalization)
  Sender: FDA-Public Use
  Company Number: FR-TEVA-274592ISR

PATIENT
  Sex: Male
  Weight: 49 kg

DRUGS (19)
  1. ATORVASTATIN CALCIUM [Concomitant]
     Indication: HYPERCHOLESTEROLAEMIA
     Route: 048
     Dates: start: 20100928
  2. EPOETIN ALFA [Concomitant]
     Indication: ANAEMIA
     Dosage: 5714.2857 IU
     Route: 058
     Dates: start: 20110302
  3. ZOLEDRONIC ACID [Concomitant]
     Indication: HYPERCALCAEMIA
     Route: 042
     Dates: start: 20100924
  4. DEXAMETHASONE [Suspect]
     Indication: MULTIPLE MYELOMA
     Route: 048
     Dates: start: 20100810
  5. LENALIDOMIDE [Suspect]
     Route: 048
     Dates: start: 20080810, end: 20110302
  6. OXYCODONE HCL [Concomitant]
     Indication: BACK PAIN
     Route: 048
     Dates: start: 20110203, end: 20110328
  7. TEMAZEPAM [Concomitant]
     Indication: BACK PAIN
     Route: 048
     Dates: start: 20110203
  8. ACETYLSALICYLATE LYSINE [Concomitant]
     Indication: THROMBOSIS PROPHYLAXIS
     Route: 048
     Dates: start: 20101018, end: 20110106
  9. MORPHINE [Concomitant]
     Indication: BACK PAIN
     Route: 058
     Dates: start: 20110203, end: 20110203
  10. ZOLEDRONIC ACID [Concomitant]
     Indication: PROPHYLAXIS
  11. PARACETAMOL [Concomitant]
     Indication: SCIATICA
     Route: 048
     Dates: start: 20110106
  12. DEXAMETHASONE [Suspect]
     Route: 048
     Dates: start: 20110302, end: 20110221
  13. OMEPRAZOLE [Concomitant]
     Indication: GASTRITIS PROPHYLAXIS
     Route: 048
     Dates: start: 20101008
  14. SYMPAVAGOL [Concomitant]
     Indication: INSOMNIA
     Route: 048
     Dates: start: 20101102
  15. OXYCODONE HCL [Concomitant]
     Indication: SCIATICA
     Route: 048
     Dates: start: 20110106, end: 20110202
  16. OXYCODONE HCL [Concomitant]
     Dates: start: 20110203
  17. LENALIDOMIDE [Suspect]
     Indication: MULTIPLE MYELOMA
     Route: 048
     Dates: start: 20110221, end: 20110302
  18. LATANOPROST [Concomitant]
     Indication: OCULAR HYPERTENSION
     Dates: start: 20060101
  19. SYMPAVAGOL [Concomitant]
     Route: 058
     Dates: start: 20101006

REACTIONS (2)
  - PULMONARY EMBOLISM [None]
  - LUNG DISORDER [None]
